FAERS Safety Report 7672494-X (Version None)
Quarter: 2011Q3

REPORT INFORMATION
  Report Type: 
  Country: None (occurrence: None)
  Receive Date: 20110809
  Receipt Date: 20110726
  Transmission Date: 20111222
  Serious: Yes (Hospitalization)
  Sender: FDA-Public Use
  Company Number: US-UCBSA-037762

PATIENT
  Sex: Female

DRUGS (1)
  1. CIMZIA [Suspect]
     Indication: CROHN'S DISEASE
     Dosage: INDUCTION DOSE ;  DATE UNKNOWN.
     Route: 058

REACTIONS (2)
  - LUNG INFECTION [None]
  - CROHN'S DISEASE [None]
